FAERS Safety Report 5722852-5 (Version None)
Quarter: 2008Q2

REPORT INFORMATION
  Report Type: 
  Country: None (occurrence: None)
  Receive Date: 20080429
  Receipt Date: 20080110
  Transmission Date: 20081010
  Serious: No
  Sender: FDA-Public Use
  Company Number: US-ASTRAZENECA-2008UW00736

PATIENT
  Age: 34 Year
  Sex: Female
  Weight: 69.9 kg

DRUGS (8)
  1. NEXIUM [Suspect]
     Route: 048
  2. NORVASC [Concomitant]
  3. COZAAR [Concomitant]
  4. ATENOLOL [Concomitant]
     Route: 048
  5. PLENDIL [Concomitant]
  6. LASIX [Concomitant]
  7. ALDACTONE [Concomitant]
  8. POTASSIUM CHLORIDE [Concomitant]

REACTIONS (1)
  - DISCOMFORT [None]
